FAERS Safety Report 8552714-X (Version None)
Quarter: 2012Q3

REPORT INFORMATION
  Report Type: 
  Country: None (occurrence: None)
  Receive Date: 20120731
  Receipt Date: 20120723
  Transmission Date: 20120928
  Serious: Yes (Other)
  Sender: FDA-Public Use
  Company Number: PHHY2012FR064353

PATIENT
  Sex: Female

DRUGS (4)
  1. PAROXETINE HCL [Interacting]
     Dosage: 20 MG ONCE DAILY
     Dates: start: 20120201, end: 20120605
  2. TEGRETOL [Suspect]
     Dosage: 200 MG DAILY
     Dates: start: 20120201, end: 20120605
  3. TEGRETOL [Interacting]
  4. BISOPROLOL FUMARATE AND HYDROCHLOROTHIAZIDE [Concomitant]
     Dosage: ONCE A DAY

REACTIONS (4)
  - GAMMA-GLUTAMYLTRANSFERASE INCREASED [None]
  - BLOOD ALKALINE PHOSPHATASE INCREASED [None]
  - DRUG LEVEL INCREASED [None]
  - DRUG INTERACTION [None]
